FAERS Safety Report 7960896-3 (Version None)
Quarter: 2011Q4

REPORT INFORMATION
  Report Type: 
  Country: None (occurrence: None)
  Receive Date: 20111121
  Receipt Date: 20111018
  Transmission Date: 20120403
  Serious: No
  Sender: FDA-Public Use
  Company Number: 1000024793

PATIENT
  Age: 53 Year
  Sex: Female

DRUGS (9)
  1. CYMBALTA [Suspect]
     Indication: ANXIETY
     Dosage: 30 MG (30 MG, 1 IN 1 D), ORAL
     Route: 048
     Dates: start: 20110101
  2. ATENOLOL [Suspect]
     Indication: MIGRAINE
     Dates: start: 20110901
  3. TOPAMAX [Suspect]
     Indication: MIGRAINE
     Dates: start: 20110901
  4. ESTROGEN SUPPLEMENT NOS (ESTROGEN SUPPLEMENT NOS) (ESTROGEN SUPPLEMENT [Concomitant]
  5. VIIBRYD [Suspect]
     Indication: ANXIETY
     Dosage: 10 MG QOD (10 MG, QOD), ORAL 10 MG (10 MG, 1 IN 1 D), ORAL 20 MG (20 MG, 1 IN 1 D), ORAL
     Route: 048
     Dates: start: 20110101, end: 20111001
  6. VIIBRYD [Suspect]
     Indication: ANXIETY
     Dosage: 10 MG QOD (10 MG, QOD), ORAL 10 MG (10 MG, 1 IN 1 D), ORAL 20 MG (20 MG, 1 IN 1 D), ORAL
     Route: 048
     Dates: start: 20111016
  7. VIIBRYD [Suspect]
     Indication: ANXIETY
     Dosage: 10 MG QOD (10 MG, QOD), ORAL 10 MG (10 MG, 1 IN 1 D), ORAL 20 MG (20 MG, 1 IN 1 D), ORAL
     Route: 048
     Dates: start: 20111001, end: 20111015
  8. CYMBALTA [Suspect]
     Indication: ANXIETY
     Dosage: 30 MG QOD (30 MG, QOD)
     Dates: start: 20110101, end: 20111013
  9. PROVERA (MEDROXYPROGESTERONE ACETATE) (MEDROXYPROGESTERONE ACETATE) [Concomitant]

REACTIONS (6)
  - DIARRHOEA [None]
  - HYPOAESTHESIA ORAL [None]
  - NAUSEA [None]
  - HEADACHE [None]
  - DIZZINESS [None]
  - FEELING ABNORMAL [None]
